FAERS Safety Report 9011848 (Version 2)
Quarter: 2013Q1

REPORT INFORMATION
  Report Type: Spontaneous
  Country: US (occurrence: None)
  Receive Date: 20121228
  Receipt Date: 20130102
  Transmission Date: 20140127
  Serious: Yes (Death)
  Sender: FDA-Public Use
  Company Number: JPI-P-026755

PATIENT
  Age: 69 Year
  Sex: Male

DRUGS (1)
  1. XYREM (500 MILLIGRAM/MILLILITERS, SOLUTION) (SODIUM OXYBATE) [Suspect]
     Indication: NARCOLEPSY
     Dosage: 1 GM (0.5 GM, 2 IN 1 D),ORAL
     Route: 048
     Dates: start: 20081015

REACTIONS (3)
  - Diarrhoea [None]
  - Pneumonia aspiration [None]
  - Small intestinal obstruction [None]
